FAERS Safety Report 21107119 (Version 1)
Quarter: 2022Q3

REPORT INFORMATION
  Report Type: Spontaneous
  Country: None (occurrence: DE)
  Receive Date: 20220720
  Receipt Date: 20220720
  Transmission Date: 20221026
  Serious: Yes (Life-Threatening, Hospitalization)
  Sender: FDA-Public Use
  Company Number: DE-Ascend Therapeutics US, LLC-2131063

PATIENT
  Age: 49 Year
  Sex: Female
  Weight: 99 kg

DRUGS (3)
  1. ESTROGEL [Suspect]
     Active Substance: ESTRADIOL
     Indication: Hot flush
     Route: 062
     Dates: start: 20220106, end: 20220609
  2. ESTROGEL [Suspect]
     Active Substance: ESTRADIOL
  3. ESTRADIOL HEMIHYDRATE [Suspect]
     Active Substance: ESTRADIOL HEMIHYDRATE
     Route: 062
     Dates: start: 20220106, end: 20220609

REACTIONS (8)
  - Abdominal pain upper [Recovering/Resolving]
  - Hepatic enzyme abnormal [Recovering/Resolving]
  - Jaundice [Recovering/Resolving]
  - Ocular icterus [Recovering/Resolving]
  - Blood test abnormal [Recovering/Resolving]
  - Hypotonia [Recovering/Resolving]
  - Fatigue [Recovering/Resolving]
  - Cholelithiasis [Recovering/Resolving]

NARRATIVE: CASE EVENT DATE: 20220401
